FAERS Safety Report 7137592-8 (Version None)
Quarter: 2010Q4

REPORT INFORMATION
  Report Type: 
  Country: None (occurrence: None)
  Receive Date: 20101206
  Receipt Date: 20101122
  Transmission Date: 20110411
  Serious: Yes (Other)
  Sender: FDA-Public Use
  Company Number: US-RANBAXY-2010US-39742

PATIENT
  Age: 42 Year
  Sex: Female

DRUGS (1)
  1. LORATADINE [Suspect]
     Indication: ARTHRITIS ALLERGIC
     Dosage: 10 MG, UNK
     Route: 065

REACTIONS (3)
  - CHOLECYSTECTOMY [None]
  - HEPATIC FAILURE [None]
  - OFF LABEL USE [None]
